FAERS Safety Report 7359581-0 (Version None)
Quarter: 2011Q1

REPORT INFORMATION
  Report Type: 
  Country: None (occurrence: None)
  Receive Date: 20110317
  Receipt Date: 20100401
  Transmission Date: 20110831
  Serious: No
  Sender: FDA-Public Use
  Company Number: US-PFIZER INC-2010042530

PATIENT
  Sex: Female

DRUGS (4)
  1. HYOSCYAMINE [Concomitant]
     Dosage: UNK
  2. TRICOR [Concomitant]
     Dosage: UNK
  3. MULTIVITAMIN [Concomitant]
     Dosage: UNK
  4. NORVASC [Suspect]
     Indication: HYPERTENSION
     Dosage: 5 MG, DAILY
     Route: 048

REACTIONS (1)
  - DYSPHAGIA [None]
